FAERS Safety Report 8623472-5 (Version None)
Quarter: 2012Q3

REPORT INFORMATION
  Report Type: 
  Country: None (occurrence: None)
  Receive Date: 20120824
  Receipt Date: 20120824
  Transmission Date: 20120928
  Serious: Yes (Disabling, Other)
  Sender: FDA-Public Use
  Company Number: None

PATIENT
  Age: 37 Year
  Sex: Female
  Weight: 62.1428 kg

DRUGS (1)
  1. LUPRON DEPOT [Suspect]

REACTIONS (7)
  - DISTURBANCE IN ATTENTION [None]
  - MEMORY IMPAIRMENT [None]
  - ANXIETY [None]
  - POLLAKIURIA [None]
  - NIGHT SWEATS [None]
  - DEPRESSION [None]
  - HOT FLUSH [None]
